FAERS Safety Report 18575149 (Version 8)
Quarter: 2022Q2

REPORT INFORMATION
  Report Type: Spontaneous
  Country: US (occurrence: US)
  Receive Date: 20201203
  Receipt Date: 20220428
  Transmission Date: 20220721
  Serious: No
  Sender: FDA-Public Use
  Company Number: US-SA-2020SA342435

PATIENT
  Age: 54 Year
  Sex: Female

DRUGS (3)
  1. CAPRELSA [Suspect]
     Active Substance: VANDETANIB
     Indication: Thyroid cancer
     Dosage: 300 MG, QD
     Route: 048
     Dates: start: 20201101
  2. CAPRELSA [Suspect]
     Active Substance: VANDETANIB
     Dosage: 200 MG, QD
     Route: 048
     Dates: start: 20201109
  3. CAPRELSA [Suspect]
     Active Substance: VANDETANIB
     Dosage: 300 MG, QD
     Route: 048
     Dates: start: 20201109

REACTIONS (17)
  - Tumour marker increased [Unknown]
  - Dyspepsia [Unknown]
  - Muscle spasms [Unknown]
  - Blood calcitonin increased [Unknown]
  - Lipiduria [Unknown]
  - Vitamin D decreased [Unknown]
  - Rhinorrhoea [Unknown]
  - Tumour marker abnormal [Unknown]
  - Cough [Unknown]
  - Renal disorder [Unknown]
  - Dry skin [Unknown]
  - Dry mouth [Unknown]
  - Diarrhoea [Recovering/Resolving]
  - Fatigue [Unknown]
  - Abdominal pain [Recovering/Resolving]
  - Acne [Not Recovered/Not Resolved]
  - Product dose omission issue [Unknown]
